FAERS Safety Report 9935786 (Version 1)
Quarter: 2014Q1

REPORT INFORMATION
  Report Type: Spontaneous
  Country: US (occurrence: US)
  Receive Date: 20140228
  Receipt Date: 20140228
  Transmission Date: 20141002
  Serious: Yes (Disabling, Other)
  Sender: FDA-Public Use
  Company Number: US-AMGEN-USASP2013068455

PATIENT
  Age: 50 Year
  Sex: Female
  Weight: 80.73 kg

DRUGS (4)
  1. ENBREL [Suspect]
     Indication: RHEUMATOID ARTHRITIS
     Dosage: UNK UNK, QWK
     Route: 058
     Dates: start: 2003, end: 2003
  2. PLAQUENIL                          /00072602/ [Concomitant]
     Dosage: UNK
  3. MTX                                /00113801/ [Concomitant]
     Dosage: UNK
  4. NSAID^S [Concomitant]
     Dosage: UNK

REACTIONS (6)
  - Injection site reaction [Recovered/Resolved]
  - Injection site pruritus [Recovered/Resolved]
  - Injection site erythema [Recovered/Resolved]
  - Injection site swelling [Recovered/Resolved]
  - Drug ineffective [Recovered/Resolved]
  - Pyrexia [Unknown]
